FAERS Safety Report 8581807-6 (Version None)
Quarter: 2012Q3

REPORT INFORMATION
  Report Type: 
  Country: None (occurrence: None)
  Receive Date: 20120809
  Receipt Date: 20120807
  Transmission Date: 20120928
  Serious: Yes (Other)
  Sender: FDA-Public Use
  Company Number: PHHY2012FI068402

PATIENT
  Age: 48 Year
  Sex: Male

DRUGS (3)
  1. PULMICORT [Concomitant]
     Indication: ASTHMA
  2. ZOLEDRONOC ACID [Suspect]
     Indication: OSTEOPOROSIS
     Dosage: UNK UKN, UNK
     Route: 042
     Dates: start: 20120501
  3. ALVESCO [Concomitant]
     Indication: ASTHMA

REACTIONS (5)
  - MALAISE [None]
  - SYNCOPE [None]
  - DIZZINESS [None]
  - ARRHYTHMIA [None]
  - PYREXIA [None]
